FAERS Safety Report 11223199 (Version 2)
Quarter: 2015Q3

REPORT INFORMATION
  Report Type: Spontaneous
  Country: US (occurrence: US)
  Receive Date: 20150626
  Receipt Date: 20150721
  Transmission Date: 20151125
  Serious: Yes (Death, Hospitalization, Disabling, Other)
  Sender: FDA-Public Use
  Company Number: US-009507513-1506USA012356

PATIENT
  Sex: Male
  Weight: 90.7 kg

DRUGS (1)
  1. JANUVIA [Suspect]
     Active Substance: SITAGLIPTIN PHOSPHATE
     Indication: TYPE 2 DIABETES MELLITUS
     Dosage: 100 MG, QD
     Route: 048
     Dates: start: 20080828, end: 20100311

REACTIONS (41)
  - Pancreatectomy [Unknown]
  - Splenectomy [Unknown]
  - Drain placement [Unknown]
  - Fungal test positive [Unknown]
  - Abdominal pain [Unknown]
  - Radiotherapy [Unknown]
  - Mucosal dryness [Unknown]
  - Dyslipidaemia [Unknown]
  - Supraventricular tachycardia [Unknown]
  - Thrombocytosis [Unknown]
  - Bacterial test positive [Unknown]
  - Gastritis [Unknown]
  - Colectomy [Unknown]
  - Enterococcal infection [Unknown]
  - Staphylococcal infection [Unknown]
  - Vomiting [Unknown]
  - Gastroenteritis [Unknown]
  - Pancreatic carcinoma metastatic [Not Recovered/Not Resolved]
  - Metastasis [Unknown]
  - Clostridium difficile colitis [Recovered/Resolved]
  - Anaemia of chronic disease [Unknown]
  - Hypokalaemia [Unknown]
  - Rotator cuff repair [Unknown]
  - Hypertension [Unknown]
  - Diabetic gastroparesis [Unknown]
  - Gastrooesophageal reflux disease [Unknown]
  - Metastases to large intestine [Unknown]
  - Food intolerance [Unknown]
  - Metastases to lymph nodes [Unknown]
  - Pancreatic fistula [Unknown]
  - Acute myocardial infarction [Unknown]
  - Nausea [Unknown]
  - Atrial fibrillation [Unknown]
  - Emotional distress [Unknown]
  - Constipation [Unknown]
  - Death [Fatal]
  - Abdominal abscess [Unknown]
  - Culture positive [Unknown]
  - Ventricular tachycardia [Recovering/Resolving]
  - Large intestinal obstruction [Unknown]
  - Cholecystitis [Unknown]

NARRATIVE: CASE EVENT DATE: 20110721
